FAERS Safety Report 5658633-0 (Version None)
Quarter: 2008Q1

REPORT INFORMATION
  Report Type: 
  Country: None (occurrence: None)
  Receive Date: 20080310
  Receipt Date: 20070521
  Transmission Date: 20080703
  Serious: No
  Sender: FDA-Public Use
  Company Number: US-BAYER-200710907BCC

PATIENT
  Age: 74 Year
  Sex: Male
  Weight: 75 kg

DRUGS (5)
  1. ALEVE [Suspect]
     Indication: HEADACHE
     Dosage: TOTAL DAILY DOSE: 220 MG  UNIT DOSE: 220 MG
     Route: 048
     Dates: start: 20070319
  2. BETA CAROTENE [Concomitant]
  3. SELENIUM [Concomitant]
  4. BLUE BONNETT MULTI-VITAMIN [Concomitant]
  5. DHEA [Concomitant]

REACTIONS (1)
  - PAIN IN EXTREMITY [None]
